FAERS Safety Report 12159843 (Version 1)
Quarter: 2016Q1

REPORT INFORMATION
  Report Type: Spontaneous
  Country: US (occurrence: None)
  Receive Date: 20160307
  Receipt Date: 20160307
  Transmission Date: 20160526
  Serious: Yes (Life-Threatening, Hospitalization, Disabling)
  Sender: FDA-Public Use
  Company Number: None

PATIENT
  Age: 62 Year
  Sex: Male
  Weight: 93.6 kg

DRUGS (1)
  1. ZYDELIG [Suspect]
     Active Substance: IDELALISIB
     Indication: NON-HODGKIN^S LYMPHOMA
     Route: 048

REACTIONS (7)
  - Gastric varices haemorrhage [None]
  - Acute hepatic failure [None]
  - Acute kidney injury [None]
  - Bacteraemia [None]
  - Dyspnoea [None]
  - Pancreatitis [None]
  - Peritonitis bacterial [None]

NARRATIVE: CASE EVENT DATE: 20160303
